FAERS Safety Report 20231545 (Version 5)
Quarter: 2022Q1

REPORT INFORMATION
  Report Type: Spontaneous
  Country: US (occurrence: US)
  Receive Date: 20211227
  Receipt Date: 20220104
  Transmission Date: 20220423
  Serious: Yes (Other)
  Sender: FDA-Public Use
  Company Number: US-NOVARTISPH-NVSC2021US295200

PATIENT

DRUGS (2)
  1. LUTATHERA [Suspect]
     Active Substance: LUTETIUM OXODOTREOTIDE LU-177
     Indication: Product used for unknown indication
     Dosage: UNK (RECEIVED  1 INJECTION DOSE)
     Route: 065
     Dates: start: 20211217, end: 20211217
  2. LUTATHERA [Suspect]
     Active Substance: LUTETIUM OXODOTREOTIDE LU-177
     Dosage: UNK (RECEIVED 3 INJECTION DOSE)
     Route: 065

REACTIONS (3)
  - Thrombocytopenia [Unknown]
  - Platelet count decreased [Unknown]
  - Ill-defined disorder [Unknown]
